FAERS Safety Report 10256632 (Version 2)
Quarter: 2014Q3

REPORT INFORMATION
  Report Type: Report from Study
  Country: GB (occurrence: GB)
  Receive Date: 20140624
  Receipt Date: 20140721
  Transmission Date: 20150326
  Serious: Yes (Other)
  Sender: FDA-Public Use
  Company Number: ALCN2014GB003620

PATIENT
  Age: 64 Year
  Sex: Male

DRUGS (11)
  1. TIMOLOL [Suspect]
     Active Substance: TIMOLOL
     Indication: GLAUCOMA
     Dosage: 1 DF, BID
     Route: 047
  2. DIAMOX SEQUELS [Suspect]
     Active Substance: ACETAZOLAMIDE
     Indication: INTRAOCULAR PRESSURE INCREASED
     Dosage: 250 MG, QID
     Route: 048
  3. BRINZOLAMIDE [Suspect]
     Active Substance: BRINZOLAMIDE
     Indication: GLAUCOMA
     Dosage: 1 DF, TID
     Route: 047
  4. LATANOPROST. [Suspect]
     Active Substance: LATANOPROST
     Indication: GLAUCOMA
     Dosage: 1 DF, QD
     Route: 047
  5. MANNITOL. [Suspect]
     Active Substance: MANNITOL
     Dosage: UNK
     Route: 042
  6. DEXAMETHASONE. [Suspect]
     Active Substance: DEXAMETHASONE
     Dosage: 0.1 UNK, QID
     Route: 047
  7. ACETAZOLAMIDE. [Suspect]
     Active Substance: ACETAZOLAMIDE
     Indication: INTRAOCULAR PRESSURE INCREASED
     Route: 042
  8. IOPIDINE [Suspect]
     Active Substance: APRACLONIDINE HYDROCHLORIDE
     Indication: GLAUCOMA
     Dosage: 1 DF, TID
     Route: 047
  9. PRED FORTE [Suspect]
     Active Substance: PREDNISOLONE ACETATE
     Dosage: 1 DF, Q2H
     Route: 047
  10. CHLORAMPHENICOL [Suspect]
     Active Substance: CHLORAMPHENICOL
     Dosage: 1 DF, QID
     Route: 047
  11. CYCLOPENTOLATE [Suspect]
     Active Substance: CYCLOPENTOLATE
     Dosage: 1 DF, QID
     Route: 047

REACTIONS (6)
  - Choroidal detachment [Unknown]
  - Ciliary body disorder [Unknown]
  - Corneal oedema [Unknown]
  - Corneal disorder [Unknown]
  - Intraocular pressure decreased [Recovered/Resolved]
  - Drug ineffective [Recovered/Resolved]
